FAERS Safety Report 4857734-4 (Version None)
Quarter: 2005Q4

REPORT INFORMATION
  Report Type: 
  Country: None (occurrence: None)
  Receive Date: 20051219
  Receipt Date: 20050330
  Transmission Date: 20060501
  Serious: No
  Sender: FDA-Public Use
  Company Number: US-GLAXOSMITHKLINE-A0551890A

PATIENT
  Age: 54 Year
  Sex: Female

DRUGS (2)
  1. EQUATE NTS 21MG [Suspect]
     Dates: end: 20050329
  2. EQUATE NTS 14MG [Suspect]
     Dates: end: 20050329

REACTIONS (4)
  - APPLICATION SITE DISCOLOURATION [None]
  - APPLICATION SITE ERYTHEMA [None]
  - APPLICATION SITE IRRITATION [None]
  - APPLICATION SITE PRURITUS [None]
